FAERS Safety Report 20607463 (Version 2)
Quarter: 2022Q2

REPORT INFORMATION
  Report Type: Spontaneous
  Country: FR (occurrence: FR)
  Receive Date: 20220317
  Receipt Date: 20220413
  Transmission Date: 20220721
  Serious: No
  Sender: FDA-Public Use
  Company Number: FR-ENDO PHARMACEUTICALS INC-2022-001896

PATIENT
  Sex: Male

DRUGS (4)
  1. EDEX [Suspect]
     Active Substance: ALPROSTADIL
     Indication: Product used for unknown indication
     Dosage: 20 UG/L, UNK
     Route: 065
  2. EDEX [Suspect]
     Active Substance: ALPROSTADIL
     Indication: Product used for unknown indication
     Dosage: 20 UG/L, UNK
     Route: 065
  3. EDEX [Suspect]
     Active Substance: ALPROSTADIL
     Indication: Product used for unknown indication
     Dosage: 20 UG/L, UNK
     Route: 065
  4. EDEX [Suspect]
     Active Substance: ALPROSTADIL
     Indication: Product used for unknown indication
     Dosage: 20 UG/L, UNK
     Route: 065

REACTIONS (2)
  - Product deposit [Unknown]
  - Syringe issue [None]
